FAERS Safety Report 14050389 (Version 2)
Quarter: 2017Q4

REPORT INFORMATION
  Report Type: Report from Study
  Country: US (occurrence: US)
  Receive Date: 20171005
  Receipt Date: 20171026
  Transmission Date: 20180321
  Serious: Yes (Death, Other)
  Sender: FDA-Public Use
  Company Number: US-EXELIXIS-CABO-17010704

PATIENT
  Age: 63 Year
  Sex: Male
  Weight: 64 kg

DRUGS (8)
  1. CABOMETYX [Suspect]
     Active Substance: CABOZANTINIB S-MALATE
     Indication: RENAL CANCER
     Dosage: 60 MG, QD
     Route: 048
     Dates: start: 20170628, end: 20170909
  2. GLIPIZIDE. [Concomitant]
     Active Substance: GLIPIZIDE
  3. ZOLOFT [Concomitant]
     Active Substance: SERTRALINE HYDROCHLORIDE
  4. ONDANSETRON [Concomitant]
     Active Substance: ONDANSETRON
  5. XARELTO [Concomitant]
     Active Substance: RIVAROXABAN
  6. ZYPREXA [Concomitant]
     Active Substance: OLANZAPINE
  7. AMLODIPINE [Concomitant]
     Active Substance: AMLODIPINE BESYLATE
  8. OXYCODONE [Concomitant]
     Active Substance: OXYCODONE

REACTIONS (5)
  - Sepsis [Unknown]
  - Malignant neoplasm progression [Fatal]
  - Pleural effusion [Fatal]
  - Acute respiratory failure [Fatal]
  - Pneumothorax [Unknown]

NARRATIVE: CASE EVENT DATE: 20170912
